FAERS Safety Report 4948311-5 (Version None)
Quarter: 2006Q1

REPORT INFORMATION
  Report Type: 
  Country: None (occurrence: None)
  Receive Date: 20060320
  Receipt Date: 20060308
  Transmission Date: 20060701
  Serious: Yes (Other)
  Sender: FDA-Public Use
  Company Number: US-ROCHE-439398

PATIENT
  Age: 56 Year
  Sex: Male

DRUGS (7)
  1. MYCOPHENOLATE MOFETIL [Suspect]
     Route: 065
  2. MYCOPHENOLATE MOFETIL [Suspect]
     Dosage: DECREASED OVER A PERIOD OF TIME.
     Route: 065
  3. MYCOPHENOLATE MOFETIL [Suspect]
     Route: 065
  4. MYCOPHENOLATE MOFETIL [Suspect]
     Route: 065
  5. TACROLIMUS [Suspect]
     Route: 065
  6. TACROLIMUS [Suspect]
     Route: 065
  7. UNSPECIFIED MEDICATIONS [Concomitant]

REACTIONS (2)
  - NEPHROGENIC ANAEMIA [None]
  - NEUTROPHIL PELGER-HUET ANOMALY PRESENT [None]
